FAERS Safety Report 8873344 (Version 2)
Quarter: 2012Q4

REPORT INFORMATION
  Report Type: 
  Country: DE (occurrence: DE)
  Receive Date: 20121029
  Receipt Date: 20121126
  Transmission Date: 20130627
  Serious: Yes (Hospitalization)
  Sender: FDA-Public Use
  Company Number: PHHO2012DE015413

PATIENT
  Age: 41 Year
  Sex: Male
  Weight: 86 kg

DRUGS (3)
  1. ACETYLSALICYLIC ACID [Suspect]
     Indication: NASOPHARYNGITIS
     Dosage: 500 mg, BID
     Route: 048
     Dates: start: 20121006, end: 20121007
  2. INC424 [Suspect]
     Indication: MYELOFIBROSIS
     Dosage: 20 mg, BID
     Route: 048
     Dates: start: 20111027, end: 20121007
  3. INC424 [Suspect]
     Dosage: UNK
     Route: 048
     Dates: start: 20121010

REACTIONS (1)
  - Gastrointestinal haemorrhage [Recovered/Resolved]
